FAERS Safety Report 8829762 (Version 2)
Quarter: 2013Q1

REPORT INFORMATION
  Report Type: Spontaneous
  Country: GB (occurrence: None)
  Receive Date: 20121002
  Receipt Date: 20121114
  Transmission Date: 20140127
  Serious: Yes (Disabling)
  Sender: FDA-Public Use
  Company Number: AUR-APL-2012-04120

PATIENT
  Age: 68 Year
  Sex: Male
  Weight: 80 kg

DRUGS (14)
  1. FLUCONAZOLE [Suspect]
     Indication: STOMATITIS
     Route: 048
     Dates: start: 20120723, end: 20120828
  2. FLUCONAZOLE [Suspect]
     Indication: PROPHYLAXIS
     Route: 048
     Dates: start: 20120723, end: 20120828
  3. AMITRIPTYLINE [Concomitant]
  4. AMLODIPINE (AMLODIPINE) [Concomitant]
  5. ATORVASTATIN (ATORVASTATIN) [Concomitant]
  6. CANDESARTAN (CANDESARTAN) [Concomitant]
  7. CARBOPLATIN (CARBOPLATIN) [Concomitant]
  8. CO-CODAMOL (PANADEINE CO) [Concomitant]
  9. DOXAZOSIN (DOXAZOSIN) [Concomitant]
  10. LANSOPRAZOLE (LANSOPRAZOLE) [Concomitant]
  11. PEMETREXED (PEMETREXED) [Concomitant]
  12. SILDENAFIL (SILDENAFIL) [Concomitant]
  13. TEMAZEPAM (TEMAZEPAM) [Concomitant]
  14. TRIMETHOPRIM (TRIMETHOPRIM) [Concomitant]

REACTIONS (6)
  - Muscular weakness [None]
  - Fall [None]
  - Fatigue [None]
  - Asthenia [None]
  - Dizziness [None]
  - Depersonalisation [None]
